FAERS Safety Report 9687157 (Version 3)
Quarter: 2013Q4

REPORT INFORMATION
  Report Type: Report from Study
  Country: US (occurrence: US)
  Receive Date: 20131113
  Receipt Date: 20131118
  Transmission Date: 20140711
  Serious: Yes (Death, Hospitalization)
  Sender: FDA-Public Use
  Company Number: PHHO2012US003435

PATIENT
  Age: 55 Year
  Sex: Male
  Weight: 69.93 kg

DRUGS (6)
  1. MEK162 [Suspect]
     Indication: MALIGNANT MELANOMA
     Dosage: 60 MG, UNK
     Route: 048
     Dates: start: 20120201, end: 20120223
  2. MEK162 [Suspect]
     Dosage: UNK
     Route: 048
     Dates: start: 20120312, end: 20120327
  3. DOXYCYCLINE [Suspect]
  4. AUGMENTINE [Suspect]
  5. ZOFRAN [Concomitant]
     Indication: NAUSEA
     Dosage: 8 MG, PRN
     Route: 048
     Dates: start: 201111
  6. COMPAZINE [Concomitant]
     Indication: NAUSEA
     Dosage: 10 MG, TID
     Route: 048
     Dates: start: 201111

REACTIONS (4)
  - Nausea [Recovered/Resolved]
  - Vomiting [Recovered/Resolved]
  - Metastatic malignant melanoma [Fatal]
  - Malignant neoplasm progression [Fatal]
